FAERS Safety Report 5486040-2 (Version None)
Quarter: 2007Q4

REPORT INFORMATION
  Report Type: 
  Country: None (occurrence: None)
  Receive Date: 20071012
  Receipt Date: 20071001
  Transmission Date: 20080405
  Serious: Yes (Life-Threatening, Hospitalization)
  Sender: FDA-Public Use
  Company Number: B0224661A 1999019615-1

PATIENT
  Age: 89 Year
  Sex: Female

DRUGS (9)
  1. AUGMENTIN [Suspect]
     Indication: PYREXIA
     Dosage: 1 GRAM (S) TWICE PER DAY INTRAVENOUS
     Route: 042
     Dates: start: 19990218, end: 19990223
  2. AMIODARONE HYDROCHLORIDE [Concomitant]
  3. DIGOXIN [Concomitant]
  4. FRUSEMIDE [Concomitant]
  5. NITROGLYCERIN [Concomitant]
  6. POTASSIUM CHLORIDE [Concomitant]
  7. LEVOTHYROXINE SODIUM [Concomitant]
  8. OFLOXACIN [Concomitant]
  9. FLUCONAZOLE [Concomitant]

REACTIONS (8)
  - AGRANULOCYTOSIS [None]
  - ANAEMIA [None]
  - ANGINA PECTORIS [None]
  - CHOLECYSTITIS [None]
  - CHOLELITHIASIS [None]
  - DYSPNOEA [None]
  - LEUKOPENIA [None]
  - THROMBOCYTOPENIA [None]
